FAERS Safety Report 20450101 (Version 1)
Quarter: 2022Q1

REPORT INFORMATION
  Report Type: Spontaneous
  Country: US (occurrence: US)
  Receive Date: 20220209
  Receipt Date: 20220209
  Transmission Date: 20220424
  Serious: No
  Sender: FDA-Public Use
  Company Number: US-PFIZER INC-2019109282

PATIENT
  Age: 90 Year
  Sex: Female
  Weight: 79 kg

DRUGS (4)
  1. XELJANZ [Suspect]
     Active Substance: TOFACITINIB CITRATE
     Indication: Rheumatoid arthritis
     Dosage: 5 MG, 1X/DAY
     Route: 048
     Dates: start: 20190206
  2. XELJANZ [Suspect]
     Active Substance: TOFACITINIB CITRATE
     Indication: Osteoporosis
     Dosage: 5 MG
  3. VALSARTAN [Concomitant]
     Active Substance: VALSARTAN
     Indication: Blood pressure abnormal
     Dosage: 160 MG, 2X/DAY
     Route: 048
  4. CARVEDILOL [Concomitant]
     Active Substance: CARVEDILOL
     Indication: Blood pressure abnormal
     Dosage: 6.25 MG, 2X/DAY
     Route: 048

REACTIONS (6)
  - Off label use [Unknown]
  - Pain in extremity [Recovering/Resolving]
  - Peripheral coldness [Unknown]
  - Musculoskeletal stiffness [Recovering/Resolving]
  - Synovitis [Recovering/Resolving]
  - Condition aggravated [Unknown]
